FAERS Safety Report 8550961-4 (Version None)
Quarter: 2012Q3

REPORT INFORMATION
  Report Type: 
  Country: None (occurrence: None)
  Receive Date: 20120730
  Receipt Date: 20120725
  Transmission Date: 20120928
  Serious: No
  Sender: FDA-Public Use
  Company Number: US-PFIZER INC-2012180371

PATIENT
  Sex: Female

DRUGS (1)
  1. IBUPROFEN (ADVIL) [Suspect]
     Dosage: UNK
     Dates: start: 20120725

REACTIONS (5)
  - DEPRESSION [None]
  - OEDEMA PERIPHERAL [None]
  - HYPERSENSITIVITY [None]
  - PALPITATIONS [None]
  - ABDOMINAL DISCOMFORT [None]
